FAERS Safety Report 20262845 (Version 1)
Quarter: 2021Q4

REPORT INFORMATION
  Report Type: Spontaneous
  Country: GB (occurrence: GB)
  Receive Date: 20211231
  Receipt Date: 20211231
  Transmission Date: 20220303
  Serious: Yes (Other)
  Sender: FDA-Public Use
  Company Number: None

PATIENT
  Age: 61 Year
  Sex: Female
  Weight: 57 kg

DRUGS (7)
  1. TRIMETHOPRIM [Suspect]
     Active Substance: TRIMETHOPRIM
     Dosage: 200 MG
     Route: 065
     Dates: start: 20211214
  2. AMLODIPINE [Concomitant]
     Active Substance: AMLODIPINE BESYLATE
     Indication: Blood pressure measurement
     Dosage: 1 DOSAGE FORMS DAILY;
     Dates: start: 20210827, end: 20211215
  3. BECLOMETHASONE DIPROPIONATE [Concomitant]
     Active Substance: BECLOMETHASONE DIPROPIONATE
     Indication: Cough
     Dosage: 4 DOSAGE FORMS DAILY;
     Dates: start: 20180619, end: 20211215
  4. LEVOTHYROXINE [Concomitant]
     Active Substance: LEVOTHYROXINE
     Dosage: 1 DOSAGE FORMS DAILY; EACH MORNING
     Dates: start: 20210827, end: 20211215
  5. ESTRADIOL [Concomitant]
     Active Substance: ESTRADIOL
     Dosage: 2 DOSAGE FORMS DAILY; APPLIED AS DIRECTED
     Dates: start: 20210724, end: 20211215
  6. SOLIFENACIN [Concomitant]
     Active Substance: SOLIFENACIN
     Indication: Bladder disorder
     Dosage: 1 DOSAGE FORMS DAILY;
     Dates: start: 20210707, end: 20211215
  7. UTROGESTAN [Concomitant]
     Active Substance: PROGESTERONE
     Dosage: 1 DOSAGE FORMS DAILY;
     Dates: start: 20210724, end: 20211215

REACTIONS (2)
  - Paraesthesia [Recovered/Resolved]
  - Drug hypersensitivity [Unknown]

NARRATIVE: CASE EVENT DATE: 20211214
